FAERS Safety Report 21227019 (Version 1)
Quarter: 2022Q3

REPORT INFORMATION
  Report Type: Spontaneous
  Country: IT (occurrence: IT)
  Receive Date: 20220818
  Receipt Date: 20220818
  Transmission Date: 20221027
  Serious: Yes (Hospitalization)
  Sender: FDA-Public Use
  Company Number: IT-MYLANLABS-2022M1087345

PATIENT
  Age: 57 Year
  Sex: Male

DRUGS (1)
  1. CLOZAPINE [Suspect]
     Active Substance: CLOZAPINE
     Indication: Schizophrenia
     Dosage: 650 MILLIGRAM, QD
     Route: 065

REACTIONS (6)
  - Toxicity to various agents [Unknown]
  - Coma [Unknown]
  - Gastrointestinal hypomotility [Unknown]
  - Neuroleptic malignant syndrome [Unknown]
  - Renal failure [Unknown]
  - Seizure [Unknown]
